FAERS Safety Report 8139601-6 (Version None)
Quarter: 2012Q1

REPORT INFORMATION
  Report Type: 
  Country: None (occurrence: None)
  Receive Date: 20120215
  Receipt Date: 20120201
  Transmission Date: 20120608
  Serious: Yes (Hospitalization)
  Sender: FDA-Public Use
  Company Number: PHHY2012AU006142

PATIENT
  Sex: Male

DRUGS (9)
  1. SIMVASTATIN [Concomitant]
     Indication: BLOOD CHOLESTEROL INCREASED
     Dosage: 40 MG, NOCTE
     Route: 048
  2. QUETIAPINE [Concomitant]
     Indication: SCHIZOPHRENIA
     Dosage: 800 MG, NOCTE
     Route: 048
  3. CLOZARIL [Suspect]
     Indication: SCHIZOPHRENIA
     Dosage: 450 MG
     Dates: start: 19930820, end: 20120125
  4. COLECALCIFEROL [Concomitant]
     Indication: VITAMIN D DEFICIENCY
     Dosage: 25 UG, MANE
  5. FERROUS SULPHATE SR [Concomitant]
     Indication: HAEMOGLOBIN ABNORMAL
     Dosage: 325 MG, MANE
     Route: 048
  6. CLOZARIL [Suspect]
     Dosage: 400 MG
     Route: 048
     Dates: start: 20120125
  7. VALPROATE SODIUM [Concomitant]
     Indication: EPILEPSY
     Dosage: 1 G, MANE
     Route: 048
  8. VALPROATE SODIUM [Concomitant]
     Dosage: 1.5 G, NOCTE
  9. MELATONIN [Concomitant]
     Indication: SLEEP DISORDER
     Dosage: 2 MG, NOCTE
     Route: 048
     Dates: start: 20111201, end: 20120101

REACTIONS (8)
  - C-REACTIVE PROTEIN INCREASED [None]
  - ANTIPSYCHOTIC DRUG LEVEL ABOVE THERAPEUTIC [None]
  - PYREXIA [None]
  - DELIRIUM [None]
  - SEDATION [None]
  - DIARRHOEA [None]
  - SALMONELLA TEST POSITIVE [None]
  - SALMONELLOSIS [None]
